FAERS Safety Report 6252340-1 (Version None)
Quarter: 2009Q2

REPORT INFORMATION
  Report Type: 
  Country: None (occurrence: None)
  Receive Date: 20090629
  Receipt Date: 20090629
  Transmission Date: 20091009
  Serious: Yes (Hospitalization, Other)
  Sender: FDA-Public Use
  Company Number: None

PATIENT
  Sex: Female
  Weight: 40.8237 kg

DRUGS (1)
  1. LEVETIRACETAM [Suspect]
     Indication: EPILEPSY
     Dosage: 7 ML MORNING 1 8 ML MORNING 1 ORAL-LIQUID
     Route: 048
     Dates: start: 20090201, end: 20090601

REACTIONS (5)
  - CONVULSION [None]
  - DIZZINESS [None]
  - DREAMY STATE [None]
  - HEADACHE [None]
  - IRON DEFICIENCY ANAEMIA [None]
